FAERS Safety Report 19861186 (Version 1)
Quarter: 2021Q3

REPORT INFORMATION
  Report Type: Spontaneous
  Country: CN (occurrence: CN)
  Receive Date: 20210920
  Receipt Date: 20210920
  Transmission Date: 20211014
  Serious: Yes (Hospitalization)
  Sender: FDA-Public Use
  Company Number: CN-SA-2021SA305802

PATIENT
  Sex: Female

DRUGS (1)
  1. CLEXANE [Suspect]
     Active Substance: ENOXAPARIN SODIUM
     Dosage: 0.4 ML
     Route: 065

REACTIONS (3)
  - Vaginal haemorrhage [Unknown]
  - Maternal exposure during pregnancy [Unknown]
  - Labour pain [Unknown]

NARRATIVE: CASE EVENT DATE: 20210913
